FAERS Safety Report 10600606 (Version 1)
Quarter: 2014Q4

REPORT INFORMATION
  Report Type: Spontaneous
  Country: US (occurrence: US)
  Receive Date: 20141124
  Receipt Date: 20141124
  Transmission Date: 20150529
  Serious: Yes (Death, Life-Threatening, Hospitalization, Disabling, Other)
  Sender: FDA-Public Use
  Company Number: US-ROCHE-1492838

PATIENT
  Sex: Female

DRUGS (2)
  1. HERCEPTIN [Suspect]
     Active Substance: TRASTUZUMAB
     Indication: PRODUCT USED FOR UNKNOWN INDICATION
     Route: 042
  2. TYKERB [Suspect]
     Active Substance: LAPATINIB DITOSYLATE
     Indication: HER-2 POSITIVE BREAST CANCER
     Dosage: PER DAY
     Route: 065
     Dates: start: 201407, end: 201407

REACTIONS (10)
  - Asthenia [Recovered/Resolved with Sequelae]
  - Diarrhoea [Recovered/Resolved with Sequelae]
  - Memory impairment [Recovered/Resolved with Sequelae]
  - Inflammatory carcinoma of the breast [Fatal]
  - Metastases to central nervous system [Fatal]
  - Abasia [Unknown]
  - Dehydration [Recovered/Resolved with Sequelae]
  - Drug ineffective [Unknown]
  - Acute kidney injury [Recovered/Resolved with Sequelae]
  - Metastases to central nervous system [Unknown]

NARRATIVE: CASE EVENT DATE: 201407
